FAERS Safety Report 8758938 (Version 1)
Quarter: 2012Q4

REPORT INFORMATION
  Report Type: 
  Country: US (occurrence: US)
  Receive Date: 20120829
  Receipt Date: 20120829
  Transmission Date: 20130627
  Serious: No
  Sender: FDA-Public Use
  Company Number: US-BAYER-2012-076099

PATIENT
  Sex: Female

DRUGS (3)
  1. CIPRO [Suspect]
     Indication: INFECTION
  2. PREMARIN [Suspect]
  3. LEVOTHYROXIN [Concomitant]

REACTIONS (2)
  - Hot flush [None]
  - Drug interaction [None]
